FAERS Safety Report 9220038 (Version 2)
Quarter: 2013Q2

REPORT INFORMATION
  Report Type: Spontaneous
  Country: IT (occurrence: IT)
  Receive Date: 20130409
  Receipt Date: 20130417
  Transmission Date: 20140414
  Serious: Yes (Hospitalization)
  Sender: FDA-Public Use
  Company Number: IT-ROCHE-1210526

PATIENT
  Age: 53 Year
  Sex: Female

DRUGS (4)
  1. TORADOL [Suspect]
     Indication: MYALGIA
     Dosage: QD
     Route: 030
     Dates: start: 20130320, end: 20130325
  2. IBUPROFEN [Suspect]
     Indication: HEADACHE
     Dosage: QD
     Route: 048
     Dates: start: 20130320, end: 20130325
  3. MUSCORIL [Concomitant]
     Dosage: 4 MG/2 ML
     Route: 065
     Dates: start: 20130320, end: 20130325
  4. TACHIPIRINA [Concomitant]
     Route: 065
     Dates: start: 20130320, end: 20130325

REACTIONS (1)
  - Gastric ulcer [Unknown]
